FAERS Safety Report 23227956 (Version 2)
Quarter: 2023Q4

REPORT INFORMATION
  Report Type: Report from Study
  Country: CA (occurrence: CA)
  Receive Date: 20231125
  Receipt Date: 20231225
  Transmission Date: 20240109
  Serious: Yes (Death, Hospitalization)
  Sender: FDA-Public Use
  Company Number: CA-ABBVIE-5511183

PATIENT
  Sex: Male

DRUGS (1)
  1. VENCLEXTA [Suspect]
     Active Substance: VENETOCLAX
     Indication: Mantle cell lymphoma
     Dosage: LAST ADMIN DATE- 2023? FORM STRENGTH 100 MILLIGRAM
     Route: 048
     Dates: start: 20230327

REACTIONS (6)
  - Fall [Fatal]
  - Pneumonia [Unknown]
  - Off label use [Unknown]
  - Febrile neutropenia [Unknown]
  - Haemorrhage intracranial [Fatal]
  - Thrombocytopenia [Unknown]

NARRATIVE: CASE EVENT DATE: 20230101
